FAERS Safety Report 16232298 (Version 4)
Quarter: 2019Q3

REPORT INFORMATION
  Report Type: Spontaneous
  Country: ES (occurrence: ES)
  Receive Date: 20190424
  Receipt Date: 20190711
  Transmission Date: 20191004
  Serious: Yes (Hospitalization, Other)
  Sender: FDA-Public Use
  Company Number: PHHY2013ES075947

PATIENT
  Age: 35 Year
  Sex: Male

DRUGS (4)
  1. ACECLOFENAC [Suspect]
     Active Substance: ACECLOFENAC
     Indication: BACK PAIN
     Dosage: 200 MG, QD
     Route: 065
  2. CYPROTERONE [Suspect]
     Active Substance: CYPROTERONE
     Indication: FEMINISATION ACQUIRED
     Dosage: 50 MG, BID
     Route: 065
  3. ESTRADIOL. [Suspect]
     Active Substance: ESTRADIOL
     Indication: FEMINISATION ACQUIRED
     Dosage: 100 UG, QD
     Route: 062
  4. DESMOPRESSIN [Suspect]
     Active Substance: DESMOPRESSIN
     Indication: DIABETES INSIPIDUS
     Dosage: 10 UG, QD IN TWO DIVIDED DOSES FOR 18 YEARS
     Route: 045

REACTIONS (12)
  - Nausea [Recovered/Resolved]
  - Loss of consciousness [Recovered/Resolved]
  - Vomiting [Recovered/Resolved]
  - Medication error [Unknown]
  - Headache [Recovered/Resolved]
  - Dizziness [Recovered/Resolved]
  - Optic atrophy [Unknown]
  - Hyponatraemia [Recovered/Resolved]
  - Depressed level of consciousness [Recovered/Resolved]
  - Visual impairment [Recovering/Resolving]
  - Lethargy [Recovered/Resolved]
  - Meningioma [Recovered/Resolved]
